FAERS Safety Report 15694617 (Version 1)
Quarter: 2018Q4

REPORT INFORMATION
  Report Type: Spontaneous
  Country: US (occurrence: US)
  Receive Date: 20181206
  Receipt Date: 20181206
  Transmission Date: 20190205
  Serious: No
  Sender: FDA-Public Use
  Company Number: US-ENDO PHARMACEUTICALS INC-2017-007972

PATIENT
  Sex: Male

DRUGS (2)
  1. XIAFLEX [Suspect]
     Active Substance: COLLAGENASE CLOSTRIDIUM HISTOLYTICUM
     Dosage: 0.58 MG, SINGLE, COMPLETED 2 CYCLES OF 2 INJECTIONS
  2. XIAFLEX [Suspect]
     Active Substance: COLLAGENASE CLOSTRIDIUM HISTOLYTICUM
     Indication: PEYRONIE^S DISEASE
     Dosage: 0.58 MG, SINGLE, FIRST INJECTION OF 3RD CYCLE
     Route: 026
     Dates: start: 20171130, end: 20171130

REACTIONS (3)
  - Muscle spasms [Unknown]
  - Abdominal pain lower [Unknown]
  - Chest pain [Unknown]

NARRATIVE: CASE EVENT DATE: 20171130
